FAERS Safety Report 10010984 (Version 1)
Quarter: 2014Q1

REPORT INFORMATION
  Report Type: Spontaneous
  Country: JP (occurrence: None)
  Receive Date: 20140311
  Receipt Date: 20140311
  Transmission Date: 20141002
  Serious: Yes (Hospitalization)
  Sender: FDA-Public Use
  Company Number: FK201400719

PATIENT
  Age: 62 Year
  Sex: Male

DRUGS (3)
  1. HEPARIN SODIUM [Suspect]
     Indication: ANTICOAGULANT THERAPY
     Dosage: NOT OTHEWISE SPECIFIED  ^ DAY 5 OF 5 OF HOSPITALISATION^
     Route: 042
  2. NAFAMOSTAT [Suspect]
     Indication: ANTICOAGULANT THERAPY
  3. ARGATROBAN [Concomitant]

REACTIONS (6)
  - Renal failure acute [None]
  - Anuria [None]
  - Heparin-induced thrombocytopenia [None]
  - Heparin-induced thrombocytopenia [None]
  - Venous stenosis [None]
  - Thrombosis in device [None]
